FAERS Safety Report 7576168 (Version 2)
Quarter: 2019Q1

REPORT INFORMATION
  Report Type: Spontaneous
  Country: GB (occurrence: GB)
  Receive Date: 20100908
  Receipt Date: 20190211
  Transmission Date: 20190418
  Serious: Yes (Life-Threatening)
  Sender: FDA-Public Use
  Company Number: GB-PFIZER INC-2010108691

PATIENT
  Age: 48 Year
  Sex: Male

DRUGS (1)
  1. CHAMPIX [Suspect]
     Active Substance: VARENICLINE TARTRATE
     Indication: SMOKING CESSATION THERAPY
     Dosage: UNK
     Route: 048
     Dates: start: 201003

REACTIONS (4)
  - Suicidal ideation [Recovering/Resolving]
  - Mood altered [Not Recovered/Not Resolved]
  - Alcoholism [Not Recovered/Not Resolved]
  - Depression [Recovering/Resolving]
